FAERS Safety Report 17460215 (Version 1)
Quarter: 2020Q1

REPORT INFORMATION
  Report Type: Spontaneous
  Country: JP (occurrence: JP)
  Receive Date: 20200226
  Receipt Date: 20200226
  Transmission Date: 20200409
  Serious: Yes (Death)
  Sender: FDA-Public Use
  Company Number: JP-CELGENEUS-JPN-20200208527

PATIENT
  Age: 7 Decade

DRUGS (1)
  1. ISTODAX [Suspect]
     Active Substance: ROMIDEPSIN
     Indication: PERIPHERAL T-CELL LYMPHOMA UNSPECIFIED
     Dosage: UNKNOWN
     Route: 041
     Dates: start: 20200121, end: 20200128

REACTIONS (1)
  - Peripheral T-cell lymphoma unspecified [Fatal]

NARRATIVE: CASE EVENT DATE: 20200221
